FAERS Safety Report 7004998-7 (Version None)
Quarter: 2010Q3

REPORT INFORMATION
  Report Type: 
  Country: None (occurrence: None)
  Receive Date: 20100917
  Receipt Date: 20100909
  Transmission Date: 20110219
  Serious: Yes (Hospitalization)
  Sender: FDA-Public Use
  Company Number: 017855

PATIENT
  Age: 37 Year
  Sex: Female

DRUGS (4)
  1. KEPPRA [Suspect]
     Dosage: (55 G POTENTIALLY; 80 KEPPRA (STRENGTH UNK - ON 250MG+500MG))
  2. CLOBAZAM (CLOBAZAM) [Suspect]
     Indication: EPILEPSY
     Dosage: (15 MG QD, 15MG NOCTE ORAL), (9 DF ONCE)
  3. ZONISAMIDE [Suspect]
     Indication: EPILEPSY
     Dosage: 925 MG QD ORAL), (14 DF ONCE)
     Route: 048
  4. ESCITALOPRAM [Concomitant]

REACTIONS (2)
  - MULTIPLE DRUG OVERDOSE [None]
  - SOMNOLENCE [None]
